FAERS Safety Report 17680891 (Version 1)
Quarter: 2020Q2

REPORT INFORMATION
  Report Type: Report from Study
  Country: DK (occurrence: DK)
  Receive Date: 20200417
  Receipt Date: 20200417
  Transmission Date: 20200714
  Serious: Yes (Hospitalization, Congenital Anomaly, Other)
  Sender: FDA-Public Use
  Company Number: DK-JNJFOC-20200416723

PATIENT

DRUGS (2)
  1. REMICADE [Suspect]
     Active Substance: INFLIXIMAB
     Indication: INFLAMMATORY BOWEL DISEASE
     Route: 064
  2. ADALIMUMAB [Suspect]
     Active Substance: ADALIMUMAB
     Indication: INFLAMMATORY BOWEL DISEASE
     Route: 064

REACTIONS (10)
  - Respiratory distress [Unknown]
  - Small for dates baby [Unknown]
  - Low birth weight baby [Unknown]
  - Apnoea [Unknown]
  - Blood glucose decreased [Unknown]
  - Meconium aspiration syndrome [Unknown]
  - Foetal exposure during pregnancy [Recovered/Resolved]
  - Congenital anomaly [Unknown]
  - Premature baby [Unknown]
  - Jaundice neonatal [Unknown]
